FAERS Safety Report 5560451-9 (Version None)
Quarter: 2007Q4

REPORT INFORMATION
  Report Type: 
  Country: None (occurrence: None)
  Receive Date: 20071215
  Receipt Date: 20071108
  Transmission Date: 20080405
  Serious: No
  Sender: FDA-Public Use
  Company Number: US-ABBOTT-07P-163-0424048-00

PATIENT
  Sex: Female

DRUGS (18)
  1. HUMIRA [Suspect]
     Indication: CROHN'S DISEASE
     Route: 058
     Dates: start: 20071011
  2. CALCIUM [Concomitant]
     Indication: DRUG USE FOR UNKNOWN INDICATION
  3. VITAMIN E [Concomitant]
     Indication: DRUG USE FOR UNKNOWN INDICATION
  4. CENTRUM [Concomitant]
     Indication: DRUG USE FOR UNKNOWN INDICATION
  5. XANAFLAX [Concomitant]
     Indication: DRUG USE FOR UNKNOWN INDICATION
  6. MERCAPTOPURINE [Concomitant]
     Indication: DRUG USE FOR UNKNOWN INDICATION
  7. FOLIC ACID [Concomitant]
     Indication: DRUG USE FOR UNKNOWN INDICATION
  8. ESOMEPRAZOLE MAGNESIUM [Concomitant]
     Indication: DRUG USE FOR UNKNOWN INDICATION
  9. CETIRIZINE HYDROCHLORIDE [Concomitant]
     Indication: DRUG USE FOR UNKNOWN INDICATION
  10. ONDANSETRON [Concomitant]
     Indication: DRUG USE FOR UNKNOWN INDICATION
  11. LEVASIN [Concomitant]
     Indication: DRUG USE FOR UNKNOWN INDICATION
  12. DETROL LA [Concomitant]
     Indication: DRUG USE FOR UNKNOWN INDICATION
  13. LOMOTIL [Concomitant]
     Indication: DRUG USE FOR UNKNOWN INDICATION
  14. ROPINIROLE HCL [Concomitant]
     Indication: DRUG USE FOR UNKNOWN INDICATION
  15. DULOXETINE HYDROCHLORIDE [Concomitant]
     Indication: DRUG USE FOR UNKNOWN INDICATION
  16. SUCRALFATE [Concomitant]
     Indication: DRUG USE FOR UNKNOWN INDICATION
  17. DOCUSATE SODIUM [Concomitant]
     Indication: DRUG USE FOR UNKNOWN INDICATION
  18. PROMETHAZINE [Concomitant]
     Indication: DRUG USE FOR UNKNOWN INDICATION

REACTIONS (3)
  - HAEMATOCHEZIA [None]
  - MUCOUS STOOLS [None]
  - RHINORRHOEA [None]
